FAERS Safety Report 5033159-6 (Version None)
Quarter: 2006Q2

REPORT INFORMATION
  Report Type: 
  Country: None (occurrence: None)
  Receive Date: 20060511
  Receipt Date: 20060216
  Transmission Date: 20061013
  Serious: No
  Sender: FDA-Public Use
  Company Number: 200611768US

PATIENT
  Age: 58 Year
  Sex: Male

DRUGS (4)
  1. INSULIN GLULISINE (APIDRA) [Suspect]
     Dates: start: 20060209
  2. LANTUS [Concomitant]
  3. ALTACE [Concomitant]
  4. PROPRANOLOL [Concomitant]

REACTIONS (1)
  - BLOOD GLUCOSE FLUCTUATION [None]
